FAERS Safety Report 8811307 (Version 1)
Quarter: 2012Q4

REPORT INFORMATION
  Report Type: 
  Country: FR (occurrence: FR)
  Receive Date: 20120927
  Receipt Date: 20120927
  Transmission Date: 20130627
  Serious: Yes (Hospitalization)
  Sender: FDA-Public Use
  Company Number: FR-JNJFOC-20120908032

PATIENT
  Age: 89 Year
  Sex: Female

DRUGS (10)
  1. DUROGESIC [Suspect]
     Indication: OSTEOARTHRITIS
     Route: 062
     Dates: start: 20090602, end: 20090606
  2. CERIS [Concomitant]
     Indication: URINARY INCONTINENCE
     Route: 048
  3. PAROXETINE [Concomitant]
     Route: 048
  4. NITRIDERM [Concomitant]
     Route: 062
  5. HEMIGOXINE NATIVELLE [Concomitant]
     Indication: CARDIAC FAILURE
     Route: 048
  6. RAMIPRIL [Concomitant]
     Indication: HYPERTENSION
     Route: 048
  7. KARDEGIC [Concomitant]
     Route: 048
  8. DOLIPRANE [Concomitant]
     Route: 048
  9. INIPOMP [Concomitant]
     Route: 048
  10. FORLAX [Concomitant]
     Route: 048

REACTIONS (2)
  - Abnormal behaviour [Recovered/Resolved]
  - Condition aggravated [Recovered/Resolved]
